FAERS Safety Report 4463474-6 (Version None)
Quarter: 2004Q3

REPORT INFORMATION
  Report Type: 
  Country: None (occurrence: None)
  Receive Date: 20040928
  Receipt Date: 20040914
  Transmission Date: 20050211
  Serious: Yes (Hospitalization)
  Sender: FDA-Public Use
  Company Number: 04P-056-0273259-00

PATIENT
  Age: 81 Year
  Sex: Male

DRUGS (16)
  1. BIAXIN [Suspect]
     Indication: BRONCHITIS
     Dosage: 250 MG , 1 IN 1 D, PER ORAL
     Route: 048
     Dates: start: 20040206, end: 20040214
  2. CELESTONE [Suspect]
     Dosage: PER ORAL
     Route: 048
  3. LASIX [Suspect]
     Indication: MYOCARDIAL ISCHAEMIA
     Dosage: 20 MG, 2 IN 1 D, PER ORAL
     Route: 048
     Dates: end: 20040224
  4. ALLOPURINOL [Suspect]
     Dosage: 1 DOSAGE FORMS, 1 IN 1 D, PER ORAL
     Route: 048
     Dates: start: 20031201, end: 20040224
  5. PULMICORT [Suspect]
     Indication: BRONCHITIS
     Dosage: RESPIRATORY (INHALATION)
     Route: 055
     Dates: start: 20040129, end: 20040216
  6. PULMICORT [Suspect]
     Indication: DISEASE RECURRENCE
     Dosage: RESPIRATORY (INHALATION)
     Route: 055
     Dates: start: 20040129, end: 20040216
  7. MUCOMYST [Suspect]
     Indication: BRONCHITIS
     Dosage: 200 MG, 1 IN 1 D, PER ORAL
     Route: 048
     Dates: start: 20040129, end: 20040216
  8. MUCOMYST [Suspect]
     Indication: DISEASE RECURRENCE
     Dosage: 200 MG, 1 IN 1 D, PER ORAL
     Route: 048
     Dates: start: 20040129, end: 20040216
  9. PNEUMOREL (FENSPIRIDE HYDROCHLORIDE) [Suspect]
     Indication: BRONCHITIS
     Dosage: 80 MG, 1 IN 1 D, PER ORAL
     Route: 048
     Dates: start: 20040206, end: 20040220
  10. DUOVENT [Concomitant]
  11. ZOCOR [Concomitant]
  12. CARBIMAZOLE [Concomitant]
  13. DILTIAZEM HYDROCHLORIDE [Concomitant]
  14. GLYCERYL [Concomitant]
  15. LEVOTHYROXINE SODIUM [Concomitant]
  16. ACETYLSALICYLATE LYSINE [Concomitant]

REACTIONS (10)
  - BLOOD ALKALINE PHOSPHATASE INCREASED [None]
  - DERMATITIS EXFOLIATIVE [None]
  - EOSINOPHIL COUNT INCREASED [None]
  - EYE DISORDER [None]
  - HYPERKERATOSIS PALMARIS AND PLANTARIS [None]
  - ORAL MUCOSAL DISORDER [None]
  - RASH PRURITIC [None]
  - RASH PUSTULAR [None]
  - RENAL FAILURE [None]
  - TONGUE DISORDER [None]
